FAERS Safety Report 4841041-X (Version None)
Quarter: 2005Q4

REPORT INFORMATION
  Report Type: 
  Country: None (occurrence: None)
  Receive Date: 20051130
  Receipt Date: 20050902
  Transmission Date: 20060501
  Serious: No
  Sender: FDA-Public Use
  Company Number: US-BRISTOL-MYERS SQUIBB COMPANY-13098702

PATIENT
  Age: 57 Year
  Sex: Male
  Weight: 68 kg

DRUGS (5)
  1. ABILIFY [Suspect]
     Indication: BIPOLAR DISORDER
     Dates: start: 20050501
  2. AMBIEN [Concomitant]
     Dosage: EVERY 3 NIGHTS
  3. CLONIDINE [Concomitant]
  4. KLONOPIN [Concomitant]
  5. TYLENOL W/ CODEINE [Concomitant]

REACTIONS (7)
  - ABDOMINAL PAIN UPPER [None]
  - ANOREXIA [None]
  - BLOOD PRESSURE INCREASED [None]
  - ERECTILE DYSFUNCTION [None]
  - HYPOAESTHESIA ORAL [None]
  - INSOMNIA [None]
  - WEIGHT DECREASED [None]
